FAERS Safety Report 5406931-8 (Version None)
Quarter: 2007Q3

REPORT INFORMATION
  Report Type: 
  Country: None (occurrence: None)
  Receive Date: 20070807
  Receipt Date: 20070803
  Transmission Date: 20080115
  Serious: Yes (Hospitalization)
  Sender: FDA-Public Use
  Company Number: JP-BRISTOL-MYERS SQUIBB COMPANY-13680525

PATIENT
  Age: 59 Year
  Sex: Male

DRUGS (13)
  1. RESLIN [Suspect]
     Indication: DEPRESSION
     Route: 048
     Dates: end: 19961224
  2. LUDIOMIL [Suspect]
     Indication: DEPRESSION
     Route: 048
     Dates: end: 19961224
  3. DOGMATYL [Suspect]
     Indication: DEPRESSION
     Route: 048
     Dates: end: 19961224
  4. TRYPTANOL [Suspect]
     Indication: DEPRESSION
     Route: 048
     Dates: end: 19961224
  5. PERPHENAZINE [Suspect]
     Indication: SCHIZOPHRENIA
     Route: 048
     Dates: end: 19961224
  6. DEPAS [Suspect]
     Indication: DEPRESSION
     Route: 048
     Dates: end: 19961224
  7. BIPERIDEN HYDROCHLORIDE TAB [Suspect]
     Indication: PARKINSONISM
     Dates: end: 19961224
  8. RISUMIC [Suspect]
     Indication: ORTHOSTATIC HYPOTENSION
     Route: 048
     Dates: end: 19961224
  9. PROMETHAZINE [Suspect]
     Indication: PARKINSONISM
     Route: 048
     Dates: end: 19961224
  10. TREMIN [Suspect]
     Indication: PARKINSONISM
     Route: 048
     Dates: end: 19961224
  11. ROHYPNOL [Suspect]
     Indication: INSOMNIA
     Route: 048
     Dates: end: 19961224
  12. ESTAZOLAM [Suspect]
     Indication: INSOMNIA
     Route: 048
     Dates: end: 19961224
  13. PURSENNID [Suspect]
     Indication: CONSTIPATION
     Route: 048
     Dates: end: 19961224

REACTIONS (4)
  - DELIRIUM [None]
  - NEUROLEPTIC MALIGNANT SYNDROME [None]
  - QUADRIPLEGIA [None]
  - RENAL FAILURE ACUTE [None]
